FAERS Safety Report 9873143 (Version 1)
Quarter: 2014Q1

REPORT INFORMATION
  Report Type: Spontaneous
  Country: US (occurrence: US)
  Receive Date: 20140206
  Receipt Date: 20140206
  Transmission Date: 20141002
  Serious: No
  Sender: FDA-Public Use
  Company Number: US-ACORDA-ACO_101023_2013

PATIENT
  Sex: Female

DRUGS (1)
  1. AMPYRA [Suspect]
     Indication: PRODUCT USED FOR UNKNOWN INDICATION
     Dosage: 10 MG, Q 12 HRS
     Route: 065
     Dates: start: 20131018, end: 20131223

REACTIONS (5)
  - Abdominal discomfort [Unknown]
  - Gait disturbance [Unknown]
  - Dyspepsia [Unknown]
  - Headache [Unknown]
  - Urinary tract infection [Unknown]
